FAERS Safety Report 10762688 (Version 1)
Quarter: 2015Q1

REPORT INFORMATION
  Report Type: Spontaneous
  Country: US (occurrence: None)
  Receive Date: 20150128
  Receipt Date: 20150128
  Transmission Date: 20150721
  Serious: Yes (Other)
  Sender: FDA-Public Use
  Company Number: 1412086

PATIENT
  Age: 55 Year
  Sex: Female
  Weight: 115.67 kg

DRUGS (2)
  1. RITUXAN [Suspect]
     Active Substance: RITUXIMAB
     Indication: MIXED CONNECTIVE TISSUE DISEASE
     Route: 042
     Dates: start: 20131010, end: 20131024
  2. RITUXAN [Suspect]
     Active Substance: RITUXIMAB
     Indication: CONNECTIVE TISSUE DISORDER
     Route: 042
     Dates: start: 20131010, end: 20131024

REACTIONS (7)
  - Pyrexia [None]
  - Pruritus [None]
  - Paraesthesia oral [None]
  - Off label use [None]
  - Fatigue [None]
  - Urticaria [None]
  - Hypoaesthesia oral [None]

NARRATIVE: CASE EVENT DATE: 20131101
